FAERS Safety Report 20873930 (Version 10)
Quarter: 2023Q4

REPORT INFORMATION
  Report Type: Report from Study
  Country: US (occurrence: US)
  Receive Date: 20220525
  Receipt Date: 20231212
  Transmission Date: 20240110
  Serious: Yes (Hospitalization, Other)
  Sender: FDA-Public Use
  Company Number: US-BoehringerIngelheim-2021-BI-136216

PATIENT
  Age: 66 Year
  Sex: Female

DRUGS (3)
  1. OFEV [Suspect]
     Active Substance: NINTEDANIB
     Indication: Idiopathic pulmonary fibrosis
     Dosage: LOT NO: 103911,105429,106683,108136,202988,204094
     Route: 048
     Dates: start: 20210708, end: 20231124
  2. OFEV [Suspect]
     Active Substance: NINTEDANIB
     Indication: Aortic valve incompetence
  3. COVID-19 VACCINE NOS [Suspect]
     Active Substance: COVID-19 VACCINE NOS
     Indication: Product used for unknown indication

REACTIONS (30)
  - Hiatus hernia [Recovered/Resolved]
  - COVID-19 pneumonia [Unknown]
  - Fall [Unknown]
  - Chest discomfort [Unknown]
  - Chest pain [Unknown]
  - Pneumothorax [Unknown]
  - Idiopathic pulmonary fibrosis [Unknown]
  - COVID-19 [Unknown]
  - Diarrhoea [Recovered/Resolved]
  - Constipation [Recovering/Resolving]
  - Fatigue [Recovering/Resolving]
  - Pyrexia [Unknown]
  - Diarrhoea [Unknown]
  - Nephrolithiasis [Unknown]
  - Renal colic [Unknown]
  - Inflammation [Unknown]
  - Nausea [Not Recovered/Not Resolved]
  - Decreased appetite [Unknown]
  - Hiatus hernia [Unknown]
  - Tremor [Unknown]
  - Flatulence [Unknown]
  - Gastrooesophageal reflux disease [Not Recovered/Not Resolved]
  - Injection site extravasation [Unknown]
  - COVID-19 [Unknown]
  - Intentional product use issue [Unknown]
  - Arthralgia [Unknown]
  - Back pain [Unknown]
  - Allergy to vaccine [Unknown]
  - Arthritis [Unknown]
  - Blood cholesterol increased [Unknown]

NARRATIVE: CASE EVENT DATE: 20210101
